FAERS Safety Report 14527075 (Version 2)
Quarter: 2018Q2

REPORT INFORMATION
  Report Type: Report from Study
  Country: US (occurrence: US)
  Receive Date: 20180213
  Receipt Date: 20180406
  Transmission Date: 20180711
  Serious: No
  Sender: FDA-Public Use
  Company Number: PHEH2018US005969

PATIENT
  Sex: Female

DRUGS (1)
  1. COSENTYX [Suspect]
     Active Substance: SECUKINUMAB
     Indication: PSORIATIC ARTHROPATHY
     Dosage: 300 MG, Q4W
     Route: 058
     Dates: start: 20180112

REACTIONS (6)
  - Arthralgia [Unknown]
  - Pruritus [Not Recovered/Not Resolved]
  - Musculoskeletal stiffness [Unknown]
  - Anxiety [Not Recovered/Not Resolved]
  - Fine motor skill dysfunction [Unknown]
  - Skin plaque [Unknown]
